FAERS Safety Report 11168307 (Version 4)
Quarter: 2017Q2

REPORT INFORMATION
  Report Type: Report from Study
  Country: US (occurrence: US)
  Receive Date: 20150605
  Receipt Date: 20170420
  Transmission Date: 20170829
  Serious: Yes (Other)
  Sender: FDA-Public Use
  Company Number: US-SA-2014SA076422

PATIENT
  Age: 58 Year
  Sex: Female

DRUGS (10)
  1. ACTONEL [Concomitant]
     Active Substance: RISEDRONATE SODIUM
  2. PANTHENOL/RETINOL/THIAMINE HYDROCHLORIDE/ASCORBIC ACID/ERGOCALCIFEROL/FOLIC ACID/RIBOFLAVIN/NICOTINA [Concomitant]
  3. BACLOFEN. [Concomitant]
     Active Substance: BACLOFEN
  4. CRESTOR [Concomitant]
     Active Substance: ROSUVASTATIN CALCIUM
  5. SYNTHROID [Concomitant]
     Active Substance: LEVOTHYROXINE SODIUM
  6. VITAMIN D [Concomitant]
     Active Substance: CHOLECALCIFEROL
  7. TECFIDERA [Concomitant]
     Active Substance: DIMETHYL FUMARATE
     Dates: start: 20130901, end: 20140529
  8. VITAMIN B12 [Concomitant]
     Active Substance: CYANOCOBALAMIN
  9. AUBAGIO [Suspect]
     Active Substance: TERIFLUNOMIDE
     Indication: MULTIPLE SCLEROSIS
     Route: 048
     Dates: start: 20140530, end: 201410
  10. AUBAGIO [Suspect]
     Active Substance: TERIFLUNOMIDE
     Indication: MULTIPLE SCLEROSIS
     Route: 048

REACTIONS (28)
  - Balance disorder [Recovered/Resolved]
  - Impaired driving ability [Unknown]
  - Decreased appetite [Unknown]
  - Walking aid user [Unknown]
  - Feeling hot [Unknown]
  - Vomiting [Unknown]
  - Diarrhoea [Recovered/Resolved]
  - Neck pain [Not Recovered/Not Resolved]
  - Influenza [Recovered/Resolved]
  - Back pain [Unknown]
  - Cough [Unknown]
  - Headache [Unknown]
  - Dysgraphia [Unknown]
  - Fatigue [Unknown]
  - Dizziness [Recovered/Resolved]
  - Gait disturbance [Unknown]
  - Dysgraphia [Not Recovered/Not Resolved]
  - Herpes zoster [Recovered/Resolved]
  - Rhinorrhoea [Unknown]
  - Paraesthesia [Not Recovered/Not Resolved]
  - Pain in extremity [Recovered/Resolved]
  - Multiple sclerosis [Unknown]
  - Stress [Not Recovered/Not Resolved]
  - Exercise tolerance decreased [Unknown]
  - Drug ineffective [Unknown]
  - Depressed mood [Unknown]
  - Blister [Recovered/Resolved]
  - Central nervous system lesion [Unknown]

NARRATIVE: CASE EVENT DATE: 20140601
